FAERS Safety Report 24921873 (Version 1)
Quarter: 2025Q1

REPORT INFORMATION
  Report Type: Spontaneous
  Country: US (occurrence: None)
  Receive Date: 20250203
  Receipt Date: 20250203
  Transmission Date: 20250409
  Serious: Yes (Other)
  Sender: FDA-CTU
  Company Number: None

PATIENT
  Age: 56 Year

DRUGS (1)
  1. CEQUA [Suspect]
     Active Substance: CYCLOSPORINE
     Dosage: 1 GTT DROP TWICE A DAY OPHTHALMIC?
     Route: 047

REACTIONS (3)
  - Dizziness [None]
  - Nausea [None]
  - Therapy interrupted [None]

NARRATIVE: CASE EVENT DATE: 20250203
